FAERS Safety Report 17846864 (Version 5)
Quarter: 2021Q2

REPORT INFORMATION
  Report Type: Report from Study
  Country: CA (occurrence: CA)
  Receive Date: 20200601
  Receipt Date: 20210419
  Transmission Date: 20210717
  Serious: Yes (Hospitalization, Other)
  Sender: FDA-Public Use
  Company Number: CA-TAKEDA-2020TUS024181

PATIENT
  Age: 81 Year
  Sex: Male
  Weight: 72 kg

DRUGS (18)
  1. PROCHLORPERAZINE. [Concomitant]
     Active Substance: PROCHLORPERAZINE
     Indication: NAUSEA
     Dosage: 10 MILLIGRAM
     Route: 065
  2. PANTOPRAZOLE [Concomitant]
     Active Substance: PANTOPRAZOLE
     Dosage: 40 MILLIGRAM, QD
     Route: 065
  3. IXAZOMIB [Suspect]
     Active Substance: IXAZOMIB
     Indication: PLASMA CELL MYELOMA
     Dosage: 4 MILLIGRAM, 1/WEEK
     Route: 048
     Dates: start: 20200423, end: 20200428
  4. ELIQUIS [Concomitant]
     Active Substance: APIXABAN
     Dosage: 5 MILLIGRAM, BID
     Route: 065
  5. MONTELUKAST [Concomitant]
     Active Substance: MONTELUKAST SODIUM
     Dosage: 10 MILLIGRAM, QD
     Route: 065
  6. AURO PREGABALIN [Concomitant]
     Dosage: 50 MILLIGRAM, BID
     Route: 065
  7. REVLIMID [Suspect]
     Active Substance: LENALIDOMIDE
     Indication: PRODUCT USED FOR UNKNOWN INDICATION
     Dosage: UNK
     Route: 065
  8. PROPAFENONE. [Concomitant]
     Active Substance: PROPAFENONE
     Dosage: 150 MILLIGRAM, BID
     Route: 065
  9. FUCIDIN (FUSIDIC ACID) [Concomitant]
     Active Substance: FUSIDIC ACID
     Dosage: UNK
     Route: 061
  10. DEXAMETHASONE. [Suspect]
     Active Substance: DEXAMETHASONE
     Indication: PRODUCT USED FOR UNKNOWN INDICATION
     Dosage: UNK
     Route: 065
  11. AURO SIMVASTATIN [Concomitant]
     Dosage: 20 MILLIGRAM, QD
     Route: 065
  12. APO CETIRIZINE [Concomitant]
     Active Substance: CETIRIZINE HYDROCHLORIDE
     Dosage: 10 MILLIGRAM, QD
     Route: 065
  13. CALCITE + D [Concomitant]
     Dosage: UNK, QD
     Route: 065
  14. EFUDEX [Concomitant]
     Active Substance: FLUOROURACIL
     Dosage: UNK
     Route: 061
  15. PROCYTOX [Suspect]
     Active Substance: CYCLOPHOSPHAMIDE
     Indication: PLASMA CELL MYELOMA
     Dosage: 500 MILLIGRAM
     Route: 065
     Dates: start: 20200323, end: 20200428
  16. CALCIUM [Concomitant]
     Active Substance: CALCIUM
     Dosage: UNK
     Route: 065
  17. RIVA?VALACYCLOVIR [Concomitant]
     Dosage: 500 MILLIGRAM, QD
     Route: 065
  18. TOLOXIN                            /00017701/ [Concomitant]
     Dosage: 0.062 MILLIGRAM
     Route: 065

REACTIONS (3)
  - Road traffic accident [Recovered/Resolved]
  - Pneumonia [Recovered/Resolved]
  - COVID-19 [Recovered/Resolved]

NARRATIVE: CASE EVENT DATE: 20200428
